FAERS Safety Report 7040507-4 (Version None)
Quarter: 2010Q4

REPORT INFORMATION
  Report Type: 
  Country: None (occurrence: None)
  Receive Date: 20101008
  Receipt Date: 20101008
  Transmission Date: 20110411
  Serious: Yes (Hospitalization, Disabling, Other)
  Sender: FDA-Public Use
  Company Number: None

PATIENT
  Age: 81 Year
  Sex: Female
  Weight: 63.05 kg

DRUGS (1)
  1. PROPAFENONE HCL [Suspect]
     Indication: ATRIAL FIBRILLATION
     Dosage: 150MG 3 A DAY
     Dates: start: 20091001, end: 20091201

REACTIONS (5)
  - CARDIAC FLUTTER [None]
  - CHEST PAIN [None]
  - DYSPNOEA [None]
  - NERVOUSNESS [None]
  - TRANSIENT ISCHAEMIC ATTACK [None]
